FAERS Safety Report 20845654 (Version 1)
Quarter: 2022Q2

REPORT INFORMATION
  Report Type: Spontaneous
  Country: US (occurrence: None)
  Receive Date: 20220518
  Receipt Date: 20220518
  Transmission Date: 20220720
  Serious: Yes (unspecified)
  Sender: FDA-Public Use
  Company Number: None

PATIENT
  Sex: Male

DRUGS (1)
  1. OTEZLA [Suspect]
     Active Substance: APREMILAST
     Indication: Psoriasis
     Dosage: FREQUENCY : DAILY;?
     Route: 048
     Dates: start: 202201

REACTIONS (6)
  - Pruritus [None]
  - Condition aggravated [None]
  - Peripheral swelling [None]
  - Onychomadesis [None]
  - Burning sensation [None]
  - Therapy non-responder [None]

NARRATIVE: CASE EVENT DATE: 20220401
